FAERS Safety Report 5003860-9 (Version None)
Quarter: 2006Q2

REPORT INFORMATION
  Report Type: 
  Country: None (occurrence: None)
  Receive Date: 20060515
  Receipt Date: 20060503
  Transmission Date: 20061013
  Serious: Yes (Hospitalization)
  Sender: FDA-Public Use
  Company Number: 2006060424

PATIENT
  Age: 23 Year
  Sex: Male
  Weight: 50 kg

DRUGS (3)
  1. ALDACTONE [Suspect]
     Indication: ASCITES
     Dosage: ORAL
     Route: 048
     Dates: start: 20060201, end: 20060310
  2. MESALAMINE [Suspect]
     Indication: GASTROINTESTINAL DISORDER
     Dosage: 2 GRAM (DAILY), ORAL
     Route: 048
     Dates: start: 20060201, end: 20060310
  3. BUDESONIDE [Suspect]
     Indication: GASTROINTESTINAL DISORDER
     Dosage: ORAL
     Route: 048
     Dates: start: 20060201, end: 20060310

REACTIONS (4)
  - EPISTAXIS [None]
  - LYMPHOPENIA [None]
  - NEUTROPENIA [None]
  - THROMBOCYTOPENIA [None]
